FAERS Safety Report 8710909 (Version 3)
Quarter: 2013Q2

REPORT INFORMATION
  Report Type: Report from Study
  Country: FR (occurrence: FR)
  Receive Date: 20120807
  Receipt Date: 20130627
  Transmission Date: 20140414
  Serious: No
  Sender: FDA-Public Use
  Company Number: FR-US-EMD SERONO, INC.-7151073

PATIENT
  Age: 38 Year
  Sex: Female
  Weight: 81 kg

DRUGS (1)
  1. REBIF [Suspect]
     Indication: MULTIPLE SCLEROSIS
     Route: 058
     Dates: start: 20101210, end: 20111201

REACTIONS (1)
  - Cognitive disorder [Recovered/Resolved]
